FAERS Safety Report 12297896 (Version 1)
Quarter: 2016Q2

REPORT INFORMATION
  Report Type: Spontaneous
  Country: NL (occurrence: NL)
  Receive Date: 20160422
  Receipt Date: 20160422
  Transmission Date: 20160815
  Serious: Yes (Other)
  Sender: FDA-Public Use
  Company Number: NL-PFIZER INC-2016220687

PATIENT
  Sex: Male

DRUGS (3)
  1. ATACAND [Concomitant]
     Active Substance: CANDESARTAN CILEXETIL
     Dosage: 32 MG, UNK
     Route: 048
     Dates: start: 200903
  2. AMLODIPINE BESILATE [Suspect]
     Active Substance: AMLODIPINE BESYLATE
     Dosage: 1 DF, UNK
     Route: 048
     Dates: start: 20081028, end: 20090303
  3. ATACAND [Concomitant]
     Active Substance: CANDESARTAN CILEXETIL
     Dosage: 16 MG, UNK
     Route: 048

REACTIONS (11)
  - Nausea [Unknown]
  - Urticaria [Unknown]
  - Myalgia [Unknown]
  - Oedema peripheral [Unknown]
  - Erythema [Unknown]
  - Skin exfoliation [Unknown]
  - Blister [Unknown]
  - Arthralgia [Unknown]
  - Constipation [Unknown]
  - Blindness transient [Recovered/Resolved]
  - Muscle spasms [Unknown]
